FAERS Safety Report 21871050 (Version 1)
Quarter: 2023Q1

REPORT INFORMATION
  Report Type: Spontaneous
  Country: US (occurrence: US)
  Receive Date: 20230117
  Receipt Date: 20230117
  Transmission Date: 20230418
  Serious: No
  Sender: FDA-Public Use
  Company Number: US-TAKEDA-2023TUS004415

PATIENT
  Sex: Female
  Weight: 77 kg

DRUGS (3)
  1. LIVTENCITY [Suspect]
     Active Substance: MARIBAVIR
     Indication: Cytomegalovirus infection
     Dosage: 200 MILLIGRAM, BID
     Route: 065
  2. TACROLIMUS [Concomitant]
     Active Substance: TACROLIMUS
     Dosage: UNK
  3. MAGNESIUM OXIDE [Concomitant]
     Active Substance: MAGNESIUM OXIDE
     Dosage: UNK

REACTIONS (2)
  - Product use issue [Unknown]
  - No adverse event [Unknown]
